FAERS Safety Report 4700283-4 (Version None)
Quarter: 2005Q2

REPORT INFORMATION
  Report Type: 
  Country: None (occurrence: None)
  Receive Date: 20050627
  Receipt Date: 20050510
  Transmission Date: 20051028
  Serious: Yes (Other)
  Sender: FDA-Public Use
  Company Number: PHBS2005JP06683

PATIENT
  Age: 70 Year

DRUGS (3)
  1. RITALIN [Suspect]
     Indication: SOMNOLENCE
     Dosage: 20 MG/D
     Route: 048
     Dates: start: 20050507, end: 20050509
  2. MORPHINE HCL ELIXIR [Concomitant]
     Indication: NEOPLASM
     Dosage: 60 MG/D
     Route: 065
     Dates: start: 20050502
  3. MORPHINE HCL ELIXIR [Concomitant]
     Dosage: 120 MG/D

REACTIONS (7)
  - BLOOD CREATINE PHOSPHOKINASE INCREASED [None]
  - BODY TEMPERATURE INCREASED [None]
  - C-REACTIVE PROTEIN INCREASED [None]
  - CARDIOMYOPATHY [None]
  - HYPERHIDROSIS [None]
  - MYOGLOBIN BLOOD INCREASED [None]
  - NEUROLEPTIC MALIGNANT SYNDROME [None]
